FAERS Safety Report 7099671-3 (Version None)
Quarter: 2010Q4

REPORT INFORMATION
  Report Type: 
  Country: None (occurrence: None)
  Receive Date: 20101112
  Receipt Date: 20101109
  Transmission Date: 20110411
  Serious: Yes (Other)
  Sender: FDA-Public Use
  Company Number: BR-PFIZER INC-2010143724

PATIENT
  Age: 55 Year
  Sex: Female
  Weight: 70 kg

DRUGS (6)
  1. CHAMPIX [Suspect]
     Indication: TOBACCO USER
     Dosage: 0.5 MG, 1X/DAY
     Route: 048
     Dates: start: 20101013
  2. CHAMPIX [Suspect]
     Dosage: 1 MG, 2X/DAY
     Route: 048
  3. CIPROFIBRATE [Concomitant]
     Indication: BLOOD CHOLESTEROL
     Dosage: UNK
  4. SOY ISOFLAVONES [Concomitant]
     Indication: HORMONE REPLACEMENT THERAPY
     Dosage: UNK
  5. ACTONEL [Concomitant]
     Indication: OSTEOPOROSIS
     Dosage: UNK
  6. CALCIUM [Concomitant]

REACTIONS (1)
  - HYPERTENSION [None]
